FAERS Safety Report 9498903 (Version 2)
Quarter: 2013Q3

REPORT INFORMATION
  Report Type: Report from Study
  Country: BR (occurrence: BR)
  Receive Date: 20130904
  Receipt Date: 20130910
  Transmission Date: 20140515
  Serious: Yes (Other)
  Sender: FDA-Public Use
  Company Number: BR-ABBOTT-13P-020-1141976-00

PATIENT
  Age: 74 Year
  Sex: Female
  Weight: 49 kg

DRUGS (8)
  1. HUMIRA [Suspect]
     Indication: RHEUMATOID ARTHRITIS
     Route: 058
     Dates: start: 20121207
  2. ACETYLSALICYLIC ACID [Concomitant]
     Indication: INFARCTION
     Route: 048
  3. PREDNISONE [Concomitant]
     Indication: ARTHRITIS
     Route: 048
  4. FUROSEMID [Concomitant]
     Indication: PERICARDIAL EFFUSION
     Route: 048
  5. EVISTA [Concomitant]
     Indication: OSTEOPOROSIS
     Route: 048
  6. CALCIUM + VITAMIN D [Concomitant]
     Indication: MINERAL SUPPLEMENTATION
     Route: 048
     Dates: start: 201305
  7. CALCIUM + VITAMIN D [Concomitant]
     Indication: VITAMIN SUPPLEMENTATION
  8. LOSARTAN [Concomitant]
     Indication: HYPERTENSION
     Route: 048
     Dates: start: 2007

REACTIONS (3)
  - Skin papilloma [Not Recovered/Not Resolved]
  - Inflammation [Not Recovered/Not Resolved]
  - Bunion [Unknown]
